FAERS Safety Report 6237304-6 (Version None)
Quarter: 2009Q2

REPORT INFORMATION
  Report Type: 
  Country: None (occurrence: None)
  Receive Date: 20090619
  Receipt Date: 20090617
  Transmission Date: 20091009
  Serious: No
  Sender: FDA-Public Use
  Company Number: US-B.I. PHARMACEUTICALS,INC./RIDGEFIELD-2009-BP-07405BP

PATIENT
  Sex: Male

DRUGS (6)
  1. MIRAPEX [Suspect]
     Indication: PARKINSON'S DISEASE
     Dosage: .75MG
     Route: 048
     Dates: start: 20090610, end: 20090612
  2. LIPITOR [Concomitant]
  3. ASACOL [Concomitant]
  4. ZYLOPRIM [Concomitant]
  5. ELAVIL [Concomitant]
  6. MELOXICAM [Concomitant]

REACTIONS (1)
  - DRUG INEFFECTIVE [None]
